FAERS Safety Report 7706313-X (Version None)
Quarter: 2011Q3

REPORT INFORMATION
  Report Type: 
  Country: None (occurrence: None)
  Receive Date: 20110824
  Receipt Date: 20110818
  Transmission Date: 20111222
  Serious: Yes (Hospitalization)
  Sender: FDA-Public Use
  Company Number: FR-ROCHE-798007

PATIENT
  Sex: Male

DRUGS (3)
  1. PROPRANOLOL [Concomitant]
     Dates: start: 20100401
  2. PEGASYS [Suspect]
     Route: 058
     Dates: start: 20100401, end: 20100501
  3. COPEGUS [Concomitant]
     Route: 048
     Dates: start: 20100401, end: 20100501

REACTIONS (1)
  - DELUSION [None]
